FAERS Safety Report 5607328-8 (Version None)
Quarter: 2008Q1

REPORT INFORMATION
  Report Type: 
  Country: None (occurrence: None)
  Receive Date: 20080130
  Receipt Date: 20080117
  Transmission Date: 20080703
  Serious: Yes (Hospitalization)
  Sender: FDA-Public Use
  Company Number: US-JNJFOC-20071110246

PATIENT
  Sex: Female
  Weight: 64.86 kg

DRUGS (2)
  1. ORTHO EVRA [Suspect]
     Indication: DRUG USE FOR UNKNOWN INDICATION
  2. WELLBUTRIN [Concomitant]

REACTIONS (2)
  - DURAL FISTULA [None]
  - INTRACRANIAL VENOUS SINUS THROMBOSIS [None]
